FAERS Safety Report 6011746-6 (Version None)
Quarter: 2008Q4

REPORT INFORMATION
  Report Type: 
  Country: None (occurrence: None)
  Receive Date: 20081218
  Receipt Date: 20080221
  Transmission Date: 20090506
  Serious: No
  Sender: FDA-Public Use
  Company Number: US-ABBOTT-08P-163-0439374-00

PATIENT
  Age: 31 Year
  Weight: 113.5 kg

DRUGS (2)
  1. MERIDIA [Suspect]
     Indication: WEIGHT CONTROL
     Route: 048
     Dates: start: 20080127, end: 20080218
  2. FEXOFENADINE [Concomitant]
     Indication: HOUSE DUST ALLERGY
     Route: 048

REACTIONS (2)
  - RASH ERYTHEMATOUS [None]
  - RASH PRURITIC [None]
